FAERS Safety Report 5840631-5 (Version None)
Quarter: 2008Q3

REPORT INFORMATION
  Report Type: 
  Country: None (occurrence: None)
  Receive Date: 20080731
  Receipt Date: 20080327
  Transmission Date: 20090109
  Serious: No
  Sender: FDA-Public Use
  Company Number: US200803006503

PATIENT
  Age: 56 Year
  Sex: Female
  Weight: 122.4 kg

DRUGS (2)
  1. BYETTA [Suspect]
     Indication: TYPE 2 DIABETES MELLITUS
     Dosage: 5 UG, 2/D, SUBCUTANEOUS : 10 UG, 2/D, SUBCUTANEOUS
     Route: 058
     Dates: start: 20070301, end: 20070401
  2. BYETTA [Suspect]
     Indication: TYPE 2 DIABETES MELLITUS
     Dosage: 5 UG, 2/D, SUBCUTANEOUS : 10 UG, 2/D, SUBCUTANEOUS
     Route: 058
     Dates: start: 20070401

REACTIONS (2)
  - INCORRECT DOSE ADMINISTERED [None]
  - SUBCUTANEOUS NODULE [None]
